FAERS Safety Report 14680646 (Version 3)
Quarter: 2018Q2

REPORT INFORMATION
  Report Type: Spontaneous
  Country: US (occurrence: US)
  Receive Date: 20180326
  Receipt Date: 20180509
  Transmission Date: 20180711
  Serious: No
  Sender: FDA-Public Use
  Company Number: US-GLAXOSMITHKLINE-US2018049805

PATIENT
  Sex: Male
  Weight: 83.9 kg

DRUGS (8)
  1. ADVAIR DISKUS [Suspect]
     Active Substance: FLUTICASONE PROPIONATE\SALMETEROL XINAFOATE
     Indication: PRODUCT USED FOR UNKNOWN INDICATION
     Dosage: 1 PUFF(S), BID
     Route: 055
     Dates: start: 20180216
  2. LATANOPROST EYE DROPS [Concomitant]
     Active Substance: LATANOPROST
  3. PROAIR HFA [Concomitant]
     Active Substance: ALBUTEROL SULFATE
  4. EZETIMIBE. [Concomitant]
     Active Substance: EZETIMIBE
  5. AZOPT OPHTHALMIC SOLUTION [Concomitant]
  6. AMLODIPINE BESYLATE AND BENAZEPRIL HYDROCHLORIDE [Concomitant]
     Active Substance: AMLODIPINE BESYLATE\BENAZEPRIL HYDROCHLORIDE
  7. CELECOXIB. [Concomitant]
     Active Substance: CELECOXIB
  8. FINASTERIDE. [Concomitant]
     Active Substance: FINASTERIDE

REACTIONS (4)
  - Drug ineffective [Unknown]
  - Ill-defined disorder [Unknown]
  - Condition aggravated [Unknown]
  - Product quality issue [Unknown]
